FAERS Safety Report 9067576 (Version 1)
Quarter: 2013Q1

REPORT INFORMATION
  Report Type: Report from Study
  Country: US (occurrence: US)
  Receive Date: 20130131
  Receipt Date: 20130131
  Transmission Date: 20140127
  Serious: No
  Sender: FDA-Public Use
  Company Number: US-ABBOTT-12P-163-1007841-00

PATIENT
  Age: 51 Year
  Sex: Male

DRUGS (7)
  1. HUMIRA [Suspect]
     Indication: COLITIS ULCERATIVE
     Dates: start: 20120926
  2. METFORMIN [Concomitant]
     Indication: DIABETES MELLITUS
  3. BENAZEPRIL [Concomitant]
     Indication: HYPERTENSION
     Dosage: 10-12.5MG DAILY
  4. APRISO [Concomitant]
     Indication: PRODUCT USED FOR UNKNOWN INDICATION
     Dosage: DAILY
  5. ALPRAZOLAM [Concomitant]
     Indication: ANXIETY
     Dosage: UP TO 4 TIMES DAILY
  6. HYDROCODONE [Concomitant]
     Indication: ARTHRALGIA
  7. HYDROCODONE ENEMAS [Concomitant]
     Indication: COLITIS ULCERATIVE
     Dosage: EVERY OTHER DAY

REACTIONS (3)
  - Insomnia [Not Recovered/Not Resolved]
  - Dyspnoea [Not Recovered/Not Resolved]
  - Upper-airway cough syndrome [Not Recovered/Not Resolved]
